FAERS Safety Report 5596988-6 (Version None)
Quarter: 2008Q1

REPORT INFORMATION
  Report Type: 
  Country: None (occurrence: None)
  Receive Date: 20080121
  Receipt Date: 20080109
  Transmission Date: 20080703
  Serious: No
  Sender: FDA-Public Use
  Company Number: US-BAYER-US-2007-041280

PATIENT
  Age: 31 Year
  Sex: Female
  Weight: 101 kg

DRUGS (4)
  1. MIRENA [Suspect]
     Indication: PELVIC PAIN
     Route: 015
     Dates: start: 20070701, end: 20070101
  2. MIRENA [Suspect]
     Route: 015
     Dates: start: 20070101
  3. AMBIEN [Concomitant]
     Indication: DRUG USE FOR UNKNOWN INDICATION
  4. YAZ [Concomitant]
     Indication: DRUG USE FOR UNKNOWN INDICATION
     Route: 048
     Dates: start: 20070301, end: 20070501

REACTIONS (3)
  - ABDOMINAL PAIN [None]
  - DYSPAREUNIA [None]
  - MENORRHAGIA [None]
